FAERS Safety Report 7625929-2 (Version None)
Quarter: 2011Q3

REPORT INFORMATION
  Report Type: 
  Country: None (occurrence: None)
  Receive Date: 20110721
  Receipt Date: 20110721
  Transmission Date: 20111222
  Serious: Yes (Other)
  Sender: FDA-Public Use
  Company Number: None

PATIENT
  Age: 59 Year
  Sex: Female
  Weight: 114.3 kg

DRUGS (6)
  1. OXYGEN [Interacting]
  2. LIDODERM [Interacting]
  3. REMICADE [Suspect]
     Dosage: 500 MG
     Route: 042
     Dates: start: 20110623, end: 20110623
  4. TOPROL-XL [Interacting]
  5. VICODIN [Interacting]
  6. BUMEX [Interacting]

REACTIONS (1)
  - CHEST PAIN [None]
